FAERS Safety Report 7003614-8 (Version None)
Quarter: 2010Q3

REPORT INFORMATION
  Report Type: 
  Country: None (occurrence: None)
  Receive Date: 20100920
  Receipt Date: 20090224
  Transmission Date: 20110219
  Serious: No
  Sender: FDA-Public Use
  Company Number: US-WYE-H08336209

PATIENT
  Age: 75 Year
  Sex: Female
  Weight: 81.72 kg

DRUGS (4)
  1. PROTONIX [Suspect]
     Indication: GASTROOESOPHAGEAL REFLUX DISEASE
     Route: 048
     Dates: start: 20080901
  2. RANITIDINE [Concomitant]
  3. LORAZEPAM [Concomitant]
  4. LIPITOR [Concomitant]

REACTIONS (1)
  - PARAESTHESIA ORAL [None]
